FAERS Safety Report 7014542-6 (Version None)
Quarter: 2010Q3

REPORT INFORMATION
  Report Type: 
  Country: None (occurrence: None)
  Receive Date: 20100927
  Receipt Date: 20100914
  Transmission Date: 20110219
  Serious: Yes (Hospitalization, Other)
  Sender: FDA-Public Use
  Company Number: US-ELI_LILLY_AND_COMPANY-US201009004390

PATIENT
  Age: 62 Year
  Sex: Female

DRUGS (1)
  1. FORTEO [Suspect]
     Dates: start: 20100828, end: 20100910

REACTIONS (5)
  - BALANCE DISORDER [None]
  - BLOOD CALCIUM INCREASED [None]
  - DYSARTHRIA [None]
  - GAIT DISTURBANCE [None]
  - NEUROLOGICAL SYMPTOM [None]
